FAERS Safety Report 26177917 (Version 1)
Quarter: 2025Q4

REPORT INFORMATION
  Report Type: Spontaneous
  Country: US (occurrence: US)
  Receive Date: 20251219
  Receipt Date: 20251219
  Transmission Date: 20260117
  Serious: Yes (Hospitalization, Other)
  Sender: ALEMBIC
  Company Number: US-ALEMBIC PHARMACUETICALS LIMITED-2025SCAL001781

PATIENT

DRUGS (2)
  1. CHLORTHALIDONE [Suspect]
     Active Substance: CHLORTHALIDONE
     Indication: Hypertension
     Dosage: 25 MILLIGRAM
     Route: 065
  2. AMLODIPINE [Suspect]
     Active Substance: AMLODIPINE BESYLATE
     Indication: Hypertension
     Dosage: 10 MILLIGRAM
     Route: 065

REACTIONS (6)
  - Haemodynamic instability [Recovered/Resolved]
  - Hypoxia [Recovered/Resolved]
  - Alveolar-arterial oxygen gradient increased [Unknown]
  - Ventilation perfusion mismatch [Unknown]
  - Blood pressure decreased [Unknown]
  - Intentional overdose [Unknown]
